FAERS Safety Report 9202589 (Version 1)
Quarter: 2013Q2

REPORT INFORMATION
  Report Type: Spontaneous
  Country: US (occurrence: US)
  Receive Date: 20130401
  Receipt Date: 20130401
  Transmission Date: 20140414
  Serious: Yes (Hospitalization)
  Sender: FDA-Public Use
  Company Number: US-ELI_LILLY_AND_COMPANY-US201303008236

PATIENT
  Age: 62 Year
  Sex: Female

DRUGS (10)
  1. FORTEO [Suspect]
     Indication: OSTEOPOROSIS
     Dosage: UNK, QD
     Dates: start: 201203
  2. LYRICA [Concomitant]
  3. PROTONIX [Concomitant]
  4. CALCIUM [Concomitant]
  5. VITAMIN D [Concomitant]
     Dosage: 3000 U, QD
  6. FISH OIL [Concomitant]
     Dosage: 1000 MG, BID
  7. ASPIRIN [Concomitant]
     Dosage: 81 MG, QD
  8. MULTIVITAMIN [Concomitant]
  9. IRON [Concomitant]
     Dosage: 325 MG, QD
  10. METOPROLOL [Concomitant]

REACTIONS (5)
  - Femur fracture [Unknown]
  - Limb injury [Unknown]
  - Gait disturbance [Unknown]
  - Pain [Unknown]
  - Activities of daily living impaired [Unknown]
